FAERS Safety Report 21345323 (Version 1)
Quarter: 2022Q3

REPORT INFORMATION
  Report Type: Spontaneous
  Country: US (occurrence: US)
  Receive Date: 20220916
  Receipt Date: 20220916
  Transmission Date: 20221026
  Serious: Yes (Other)
  Sender: FDA-Public Use
  Company Number: US-PFIZER INC-202201163604

PATIENT
  Age: 67 Year
  Sex: Female
  Weight: 64.86 kg

DRUGS (2)
  1. IBRANCE [Suspect]
     Active Substance: PALBOCICLIB
     Indication: Breast cancer female
     Dosage: 125 MG, CYCLIC (ONCE A DAY FOR 21 DAY CYCLE AND 7 DAYS OFF)
  2. IBRANCE [Suspect]
     Active Substance: PALBOCICLIB
     Indication: Gastric cancer

REACTIONS (3)
  - Hepatic cirrhosis [Not Recovered/Not Resolved]
  - Liver disorder [Not Recovered/Not Resolved]
  - Blood bilirubin abnormal [Unknown]

NARRATIVE: CASE EVENT DATE: 20220101
